FAERS Safety Report 11358495 (Version 1)
Quarter: 2015Q3

REPORT INFORMATION
  Report Type: Spontaneous
  Country: US (occurrence: US)
  Receive Date: 20150803
  Receipt Date: 20150803
  Transmission Date: 20151125
  Serious: No
  Sender: FDA-Public Use
  Company Number: US-ELI_LILLY_AND_COMPANY-USA0506100295

PATIENT
  Age: 40 Year
  Sex: Male
  Weight: 61.22 kg

DRUGS (6)
  1. TRAZODONE [Concomitant]
     Active Substance: TRAZODONE HYDROCHLORIDE
     Indication: DEPRESSION
     Dosage: 50 MG, DAILY (1/D)
  2. AMITRIPTYLINE [Concomitant]
     Active Substance: AMITRIPTYLINE
     Indication: DEPRESSION
  3. ZYPREXA [Suspect]
     Active Substance: OLANZAPINE
     Indication: STRESS
     Dosage: 2.5 MG, EACH EVENING
     Dates: start: 20020719, end: 200504
  4. LORAZEPAM. [Concomitant]
     Active Substance: LORAZEPAM
     Indication: STRESS
     Dosage: 0.5 MG, DAILY (1/D)
  5. NAPROSYN [Concomitant]
     Active Substance: NAPROXEN
     Dosage: UNK, UNKNOWN
     Dates: start: 20021017
  6. PARAFON FORTE [Concomitant]
     Active Substance: CHLORZOXAZONE
     Indication: JOINT INJURY

REACTIONS (14)
  - Insomnia [Unknown]
  - Glucose tolerance impaired [Unknown]
  - Diabetes mellitus [Not Recovered/Not Resolved]
  - Visual impairment [Not Recovered/Not Resolved]
  - Groin pain [Unknown]
  - Sinus operation [Recovered/Resolved]
  - Fatigue [Unknown]
  - Amnesia [Unknown]
  - Renal pain [Not Recovered/Not Resolved]
  - Dry mouth [Not Recovered/Not Resolved]
  - Mental disorder [Unknown]
  - Fatigue [Not Recovered/Not Resolved]
  - Osteoarthritis [Unknown]
  - Stress [Unknown]

NARRATIVE: CASE EVENT DATE: 20021017
